FAERS Safety Report 10614679 (Version 5)
Quarter: 2019Q3

REPORT INFORMATION
  Report Type: Spontaneous
  Country: CA (occurrence: CA)
  Receive Date: 20141130
  Receipt Date: 20190801
  Transmission Date: 20191004
  Serious: Yes (Hospitalization, Other)
  Sender: FDA-Public Use
  Company Number: CA-ROCHE-1496772

PATIENT
  Age: 55 Year
  Sex: Female

DRUGS (18)
  1. CELEBREX [Suspect]
     Active Substance: CELECOXIB
     Indication: ARTHRALGIA
     Dosage: 2009 OR 2012 START, STOPPED FALL 2014. LATER RE-STARTED IT AGAIN.
     Route: 065
  2. ENBREL [Suspect]
     Active Substance: ETANERCEPT
     Route: 065
  3. PLAQUENIL [Suspect]
     Active Substance: HYDROXYCHLOROQUINE SULFATE
     Indication: ARTHRALGIA
     Dosage: STOPPED AS DID NOT DO ANYTHING
     Route: 065
     Dates: start: 201205, end: 201406
  4. PLAQUENIL [Suspect]
     Active Substance: HYDROXYCHLOROQUINE SULFATE
     Indication: PAIN
     Route: 065
  5. DILAUDID [Concomitant]
     Active Substance: HYDROMORPHONE HYDROCHLORIDE
     Indication: ARTHRALGIA
     Dosage: AS NEEDED, STARTED 2009 APPROXIMATELY
     Route: 065
  6. DILAUDID [Concomitant]
     Active Substance: HYDROMORPHONE HYDROCHLORIDE
     Dosage: AS REQUIRED
     Route: 065
  7. FUROSEMIDE. [Concomitant]
     Active Substance: FUROSEMIDE
     Route: 065
  8. ACTEMRA [Suspect]
     Active Substance: TOCILIZUMAB
     Indication: ARTHRALGIA
     Dosage: STARTED SUMMER 2013, HAD 3 DOSES IN TOTAL
     Route: 042
     Dates: start: 2013, end: 2013
  9. CELEBREX [Suspect]
     Active Substance: CELECOXIB
     Route: 065
  10. HYDROMORPH CONTIN [Concomitant]
     Active Substance: HYDROMORPHONE
     Dosage: SUSTAINED RELEASE
     Route: 065
  11. ENBREL [Suspect]
     Active Substance: ETANERCEPT
     Indication: RHEUMATOID ARTHRITIS
     Dosage: 6 MONTHS
     Route: 058
  12. METHOTREXATE SODIUM. [Suspect]
     Active Substance: METHOTREXATE SODIUM
     Indication: RHEUMATOID ARTHRITIS
     Route: 065
  13. HYDROMORPH CONTIN [Concomitant]
     Active Substance: HYDROMORPHONE
     Indication: ARTHRALGIA
     Route: 065
  14. ARAVA [Suspect]
     Active Substance: LEFLUNOMIDE
     Indication: RHEUMATOID ARTHRITIS
     Route: 065
  15. CELEBREX [Suspect]
     Active Substance: CELECOXIB
     Dosage: RE-STARTED WHEN HAD A RHEUMATOID ARTHRITIS FLARE
     Route: 065
     Dates: start: 2014
  16. PREDNISONE. [Suspect]
     Active Substance: PREDNISONE
     Route: 065
  17. LYRICA [Concomitant]
     Active Substance: PREGABALIN
     Indication: FIBROMYALGIA
     Dosage: 2 CAPSULES MORNING, 1 AT NIGHT, 2010 START APPROX.
     Route: 048
  18. PREDNISONE. [Suspect]
     Active Substance: PREDNISONE
     Indication: ARTHRALGIA
     Route: 065
     Dates: start: 201205

REACTIONS (30)
  - Drug ineffective [Unknown]
  - Scar [Recovered/Resolved]
  - Immunodeficiency [Recovered/Resolved]
  - Psychiatric symptom [Recovered/Resolved]
  - Spinal deformity [Recovered/Resolved]
  - Cardiovascular disorder [Recovered/Resolved]
  - Encephalitis [Recovered/Resolved]
  - Fall [Unknown]
  - Pain [Recovered/Resolved]
  - Peripheral swelling [Recovered/Resolved]
  - Seizure [Recovered/Resolved]
  - Deformity [Recovered/Resolved]
  - Rib fracture [Recovered/Resolved]
  - Condition aggravated [Recovered/Resolved]
  - Rheumatoid arthritis [Unknown]
  - Insomnia [Recovered/Resolved]
  - Joint destruction [Recovered/Resolved]
  - Amnesia [Recovered/Resolved]
  - Dermatitis [Recovered/Resolved]
  - Immobile [Recovered/Resolved]
  - Cystitis [Recovered/Resolved]
  - Loss of personal independence in daily activities [Recovered/Resolved]
  - Immune system disorder [Recovered/Resolved]
  - Rheumatoid arthritis [Recovered/Resolved]
  - Vomiting [Recovered/Resolved]
  - Depressed mood [Recovered/Resolved]
  - Fibromyalgia [Recovered/Resolved]
  - Encephalitis brain stem [Recovered/Resolved]
  - Memory impairment [Recovered/Resolved]
  - Sepsis [Recovered/Resolved]

NARRATIVE: CASE EVENT DATE: 2013
